FAERS Safety Report 24000467 (Version 1)
Quarter: 2024Q2

REPORT INFORMATION
  Report Type: Report from Study
  Country: KR (occurrence: KR)
  Receive Date: 20240621
  Receipt Date: 20240621
  Transmission Date: 20240715
  Serious: Yes (Life-Threatening, Hospitalization, Other)
  Sender: FDA-Public Use
  Company Number: KR-JAZZ PHARMACEUTICALS-2024-KR-005597

PATIENT
  Age: 65 Year
  Sex: Male
  Weight: 86.3 kg

DRUGS (7)
  1. LURBINECTEDIN [Suspect]
     Active Substance: LURBINECTEDIN
     Indication: Small cell lung cancer
     Dosage: 3.2 MILLIGRAM/SQ. METER, Q3W
     Route: 042
     Dates: start: 20230502, end: 20230523
  2. LURBINECTEDIN [Suspect]
     Active Substance: LURBINECTEDIN
     Dosage: UNK
     Dates: start: 20230628
  3. ZOFRAN [Concomitant]
     Active Substance: ONDANSETRON HYDROCHLORIDE
     Indication: Prophylaxis of nausea and vomiting
     Dosage: 8 MILLIGRAM/12 H
     Route: 048
     Dates: start: 20230502, end: 20230524
  4. KANARB [Concomitant]
     Indication: Hypertension
     Dosage: 1 DOSAGE FORM / 1 D
     Route: 048
     Dates: start: 20230119
  5. URSODIOL [Concomitant]
     Active Substance: URSODIOL
     Indication: Prophylaxis
     Dosage: 1 DOSAGE FORM / 12H
     Route: 048
     Dates: start: 20230119
  6. LEVOTICS CR [Concomitant]
     Indication: Small cell lung cancer
     Dosage: 1 DOSAGE FORM / 12H
     Route: 048
     Dates: start: 20230119
  7. LIPITOR [Concomitant]
     Active Substance: ATORVASTATIN CALCIUM
     Indication: Hyperlipidaemia
     Dosage: 1 DOSAGE FORM
     Route: 048
     Dates: start: 20230119

REACTIONS (3)
  - Neutrophil count decreased [Recovered/Resolved]
  - Pneumonia [Recovered/Resolved]
  - Platelet count decreased [Recovering/Resolving]

NARRATIVE: CASE EVENT DATE: 20230530
